FAERS Safety Report 4350200-4 (Version None)
Quarter: 2004Q2

REPORT INFORMATION
  Report Type: 
  Country: None (occurrence: None)
  Receive Date: 20040428
  Receipt Date: 20040414
  Transmission Date: 20050107
  Serious: No
  Sender: FDA-Public Use
  Company Number: A20040207

PATIENT
  Age: 70 Year
  Sex: Female

DRUGS (2)
  1. CRAVIT OPTHALAMIC SOLUTION(0.5% LEVOFLOXACIN OPTHALAMIC SOLUTION) [Suspect]
     Indication: ANTIINFLAMMATORY THERAPY
     Dosage: 4 DROPS
     Route: 031
     Dates: start: 20020621, end: 20031230
  2. FLUMETHOLON 0.1(0.1% FLUOROMETHOLONE OPHTHALMIC SOLUTION) [Suspect]
     Indication: ANTIINFLAMMATORY THERAPY
     Dosage: 4 DROPS
     Route: 031
     Dates: start: 20020621, end: 20031225

REACTIONS (4)
  - CORNEAL ABSCESS [None]
  - ENDOPHTHALMITIS [None]
  - POSTOPERATIVE ABSCESS [None]
  - VITREOUS OPACITIES [None]
